FAERS Safety Report 23040493 (Version 4)
Quarter: 2023Q4

REPORT INFORMATION
  Report Type: Other
  Country: US (occurrence: US)
  Receive Date: 20231006
  Receipt Date: 20231106
  Transmission Date: 20240109
  Serious: Yes (Hospitalization)
  Sender: FDA-Public Use
  Company Number: US-TRAVERE-2023TVT00422

PATIENT
  Sex: Male

DRUGS (3)
  1. CHOLBAM [Suspect]
     Active Substance: CHOLIC ACID
     Indication: Smith-Lemli-Opitz syndrome
     Dosage: 50 MG
     Route: 048
     Dates: start: 20230729
  2. CHOLBAM [Suspect]
     Active Substance: CHOLIC ACID
     Dosage: 50 MG
     Route: 048
     Dates: start: 20230630
  3. CHOLBAM [Suspect]
     Active Substance: CHOLIC ACID
     Dosage: 50 MG
     Route: 048
     Dates: start: 20231010

REACTIONS (8)
  - Pancreatitis [Unknown]
  - Gastrointestinal disorder [Unknown]
  - Nasopharyngitis [Unknown]
  - Feeding disorder [Unknown]
  - Constipation [Unknown]
  - Crying [Unknown]
  - Irritability [Unknown]
  - Diarrhoea [Recovered/Resolved]

NARRATIVE: CASE EVENT DATE: 20230801
